FAERS Safety Report 9487191 (Version 1)
Quarter: 2013Q3

REPORT INFORMATION
  Report Type: Spontaneous
  Country: GB (occurrence: None)
  Receive Date: 20130823
  Receipt Date: 20130823
  Transmission Date: 20140515
  Serious: Yes (Disabling)
  Sender: FDA-Public Use
  Company Number: GB-012692

PATIENT
  Age: 85 Year
  Sex: Male
  Weight: 77.6 kg

DRUGS (7)
  1. DEGARELIX [Suspect]
     Indication: PROSTATE CANCER
     Route: 051
     Dates: start: 20120228
  2. ATENOLOL [Concomitant]
  3. ATORVASTATIN [Concomitant]
  4. CLOPIDOGREL [Concomitant]
  5. FINASTERIDE [Concomitant]
  6. FLOMAXTRA XL [Concomitant]
  7. LERCANIDIPINE HYDROCHLORIDE [Concomitant]

REACTIONS (2)
  - Rhinorrhoea [None]
  - Penile size reduced [None]
